FAERS Safety Report 23978895 (Version 2)
Quarter: 2024Q3

REPORT INFORMATION
  Report Type: Other
  Country: US (occurrence: US)
  Receive Date: 20240615
  Receipt Date: 20240713
  Transmission Date: 20241017
  Serious: Yes (Other)
  Sender: GLENMARK
  Company Number: US-GLENMARK PHARMACEUTICALS-2024GMK091401

PATIENT

DRUGS (1)
  1. TOPIRAMATE [Suspect]
     Active Substance: TOPIRAMATE
     Indication: Product used for unknown indication
     Dosage: UNK
     Route: 065

REACTIONS (8)
  - Partial seizures [Unknown]
  - Seizure [Unknown]
  - Deja vu [Unknown]
  - Confusional state [Unknown]
  - Speech disorder [Unknown]
  - Treatment failure [Unknown]
  - Product substitution issue [Unknown]
  - Product measured potency issue [Unknown]
